FAERS Safety Report 9348445 (Version 1)
Quarter: 2013Q2

REPORT INFORMATION
  Report Type: Spontaneous
  Country: US (occurrence: None)
  Receive Date: 20130613
  Receipt Date: 20130613
  Transmission Date: 20140414
  Serious: No
  Sender: FDA-Public Use
  Company Number: None

PATIENT
  Age: 23 Year
  Sex: Female
  Weight: 58.97 kg

DRUGS (1)
  1. AMPHETAMINE [Suspect]
     Indication: ATTENTION DEFICIT/HYPERACTIVITY DISORDER
     Route: 048
     Dates: start: 20130120, end: 20130121

REACTIONS (20)
  - Anxiety [None]
  - Vision blurred [None]
  - Cold sweat [None]
  - Depression [None]
  - Salivary hypersecretion [None]
  - Fatigue [None]
  - Headache [None]
  - Mental impairment [None]
  - Cognitive disorder [None]
  - Confusional state [None]
  - Motor dysfunction [None]
  - Insomnia [None]
  - Somnolence [None]
  - Irritability [None]
  - Restlessness [None]
  - Decreased appetite [None]
  - Mood altered [None]
  - Nausea [None]
  - Dizziness [None]
  - Tunnel vision [None]
